FAERS Safety Report 10418113 (Version 1)
Quarter: 2014Q3

REPORT INFORMATION
  Report Type: Spontaneous
  Country: US (occurrence: None)
  Receive Date: 20140828
  Receipt Date: 20140828
  Transmission Date: 20150326
  Serious: Yes (Life-Threatening, Hospitalization)
  Sender: FDA-Public Use
  Company Number: None

PATIENT
  Age: 49 Year
  Sex: Male
  Weight: 103.6 kg

DRUGS (1)
  1. WARFARIN [Suspect]
     Active Substance: WARFARIN
     Route: 048
     Dates: start: 20110922, end: 20140630

REACTIONS (5)
  - International normalised ratio increased [None]
  - Haematuria [None]
  - Gastric haemorrhage [None]
  - Haematemesis [None]
  - Mucosal haemorrhage [None]

NARRATIVE: CASE EVENT DATE: 20140630
